FAERS Safety Report 9496658 (Version 2)
Quarter: 2013Q3

REPORT INFORMATION
  Report Type: Spontaneous
  Country: DK (occurrence: FR)
  Receive Date: 20130904
  Receipt Date: 20130906
  Transmission Date: 20140515
  Serious: Yes (Hospitalization)
  Sender: FDA-Public Use
  Company Number: FR-FRI-1000048356

PATIENT
  Age: 51 Year
  Sex: Male

DRUGS (6)
  1. ESCITALOPRAM [Suspect]
     Dosage: 1 DF
     Route: 048
  2. KLIPAL CODEIN [Suspect]
     Route: 048
  3. PARIET [Suspect]
     Dosage: 1 DF
     Route: 048
  4. ALTEIS [Suspect]
     Dosage: 1 DF
     Route: 048
  5. AERIUS [Suspect]
     Dosage: 1 DF
     Route: 048
  6. CACIT VITAMINE D3 [Suspect]
     Route: 048

REACTIONS (3)
  - Loss of consciousness [Recovered/Resolved]
  - Malaise [Recovered/Resolved]
  - Vertigo [Recovered/Resolved]
